FAERS Safety Report 8464632-6 (Version None)
Quarter: 2012Q2

REPORT INFORMATION
  Report Type: 
  Country: None (occurrence: None)
  Receive Date: 20120620
  Receipt Date: 20120620
  Transmission Date: 20120825
  Serious: Yes (Other)
  Sender: FDA-Public Use
  Company Number: None

PATIENT
  Age: 53 Year
  Sex: Female
  Weight: 83.0083 kg

DRUGS (1)
  1. MOVIPREP [Suspect]
     Indication: COLONOSCOPY
     Dosage: 8 OZ. EVERY 15 MINUTES
     Dates: start: 20120618, end: 20120618

REACTIONS (3)
  - HEADACHE [None]
  - VOMITING [None]
  - DYSGEUSIA [None]
